FAERS Safety Report 6921823-0 (Version None)
Quarter: 2010Q3

REPORT INFORMATION
  Report Type: 
  Country: None (occurrence: None)
  Receive Date: 20100812
  Receipt Date: 20100806
  Transmission Date: 20110219
  Serious: Yes (Life-Threatening, Hospitalization, Other)
  Sender: FDA-Public Use
  Company Number: BE-BRISTOL-MYERS SQUIBB COMPANY-15231608

PATIENT
  Age: 71 Year
  Sex: Female

DRUGS (5)
  1. METFORMIN HCL [Suspect]
  2. ACETYLSALICYLIC ACID SRT [Suspect]
  3. METOPROLOL TARTRATE [Suspect]
  4. GLICLAZIDE [Suspect]
  5. ATORVASTATIN [Suspect]

REACTIONS (8)
  - ABDOMINAL PAIN [None]
  - CARDIAC ARREST [None]
  - DIARRHOEA [None]
  - HYPOGLYCAEMIA [None]
  - LACTIC ACIDOSIS [None]
  - NAUSEA [None]
  - RENAL FAILURE ACUTE [None]
  - VOMITING [None]
